FAERS Safety Report 16221374 (Version 3)
Quarter: 2019Q2

REPORT INFORMATION
  Report Type: Spontaneous
  Country: JP (occurrence: JP)
  Receive Date: 20190422
  Receipt Date: 20190607
  Transmission Date: 20190711
  Serious: Yes (Hospitalization, Other)
  Sender: FDA-Public Use
  Company Number: JP-009507513-1811JPN003409J

PATIENT
  Age: 73 Year
  Sex: Male

DRUGS (1)
  1. KEYTRUDA [Suspect]
     Active Substance: PEMBROLIZUMAB
     Indication: LUNG ADENOCARCINOMA
     Dosage: 200 MILLIGRAM, Q3W
     Route: 041

REACTIONS (4)
  - Blood creatine phosphokinase increased [Recovering/Resolving]
  - Therapy partial responder [Unknown]
  - Immune-mediated necrotising myopathy [Recovered/Resolved]
  - Immune-mediated adverse reaction [Unknown]
